FAERS Safety Report 4684029-4 (Version None)
Quarter: 2005Q2

REPORT INFORMATION
  Report Type: 
  Country: None (occurrence: None)
  Receive Date: 20050602
  Receipt Date: 20050329
  Transmission Date: 20051028
  Serious: Yes (Death)
  Sender: FDA-Public Use
  Company Number: 400091

PATIENT
  Age: 23 Year
  Sex: Male

DRUGS (1)
  1. LARIAM [Suspect]
     Indication: MALARIA PROPHYLAXIS
     Dosage: ORAL
     Route: 048

REACTIONS (7)
  - COMPLETED SUICIDE [None]
  - DEPRESSION [None]
  - INJURY [None]
  - NIGHTMARE [None]
  - PERSONALITY CHANGE [None]
  - SLEEP DISORDER [None]
  - WEIGHT DECREASED [None]
